FAERS Safety Report 18926367 (Version 1)
Quarter: 2021Q1

REPORT INFORMATION
  Report Type: Spontaneous
  Country: IL (occurrence: IL)
  Receive Date: 20210223
  Receipt Date: 20210223
  Transmission Date: 20210420
  Serious: Yes (Life-Threatening, Hospitalization)
  Sender: FDA-Public Use
  Company Number: IL-CELLTRION INC.-2021IL002159

PATIENT

DRUGS (1)
  1. RITUXIMAB (UNKNOWN) [Suspect]
     Active Substance: RITUXIMAB
     Indication: PEMPHIGUS
     Dosage: 1000 MG ON DAYS 0 AND 14 (GREATER THAN OR EQUAL TO 1 CYCLE)

REACTIONS (1)
  - Hypersensitivity pneumonitis [Recovered/Resolved]
